FAERS Safety Report 5652467-9 (Version None)
Quarter: 2008Q1

REPORT INFORMATION
  Report Type: 
  Country: None (occurrence: None)
  Receive Date: 20080305
  Receipt Date: 20080305
  Transmission Date: 20080703
  Serious: Yes (Other)
  Sender: FDA-Public Use
  Company Number: None

PATIENT
  Age: 84 Year
  Sex: Female

DRUGS (11)
  1. WARFARIN SODIUM [Suspect]
     Indication: ATRIAL FIBRILLATION
     Dosage: 2MG DAILY PO
     Route: 048
  2. WARFARIN SODIUM [Suspect]
     Indication: THROMBOSIS PROPHYLAXIS
     Dosage: 2MG DAILY PO
     Route: 048
  3. CRANBERRY POWER CAPS 425MG [Suspect]
     Indication: PROPHYLAXIS
     Dosage: 425MG TID PO
     Route: 048
     Dates: start: 20070807, end: 20070915
  4. CRANBERRY POWER CAPS 425MG [Suspect]
     Indication: URINARY TRACT INFECTION
     Dosage: 425MG TID PO
     Route: 048
     Dates: start: 20070807, end: 20070915
  5. WARFARIN SODIUM [Concomitant]
  6. DILTIAZEM [Concomitant]
  7. FOLIC ACID [Concomitant]
  8. FUROSEMIDE [Concomitant]
  9. METOPROLOL TARTRATE [Concomitant]
  10. MULTI-VITAMIN [Concomitant]
  11. DEPAKOTE [Concomitant]

REACTIONS (7)
  - ATRIAL FIBRILLATION [None]
  - DEHYDRATION [None]
  - DRUG INTERACTION [None]
  - ENCEPHALOPATHY [None]
  - HYPOPROTHROMBINAEMIA [None]
  - INTERNATIONAL NORMALISED RATIO INCREASED [None]
  - LOSS OF CONSCIOUSNESS [None]
